FAERS Safety Report 12289995 (Version 1)
Quarter: 2016Q2

REPORT INFORMATION
  Report Type: Spontaneous
  Country: GB (occurrence: GB)
  Receive Date: 20160421
  Receipt Date: 20160421
  Transmission Date: 20160815
  Serious: Yes (Other)
  Sender: FDA-Public Use
  Company Number: GB-GLAXOSMITHKLINE-GB2016050077

PATIENT
  Sex: Female

DRUGS (1)
  1. SCOPODERM TTS [Suspect]
     Active Substance: SCOPOLAMINE
     Indication: PRODUCT USED FOR UNKNOWN INDICATION
     Dosage: 0.365
     Route: 061
     Dates: start: 20160210

REACTIONS (4)
  - Vision blurred [Recovered/Resolved]
  - Accidental exposure to product [Unknown]
  - Pruritus [Recovered/Resolved]
  - Mydriasis [Recovered/Resolved]
